FAERS Safety Report 6551323-1 (Version None)
Quarter: 2010Q1

REPORT INFORMATION
  Report Type: 
  Country: None (occurrence: None)
  Receive Date: 20100120
  Receipt Date: 20100114
  Transmission Date: 20100710
  Serious: Yes (Hospitalization, Other)
  Sender: FDA-Public Use
  Company Number: 2009SP007425

PATIENT
  Age: 48 Year
  Sex: Male
  Weight: 65 kg

DRUGS (8)
  1. PEG-INTRON [Suspect]
     Indication: HEPATITIS C
     Dosage: 70 MCG;QW;SC
     Route: 058
     Dates: start: 20060828
  2. RIBAVIRIN [Suspect]
     Indication: HEPATITIS C
     Dosage: 1000 MG;QD;PO
     Route: 048
     Dates: start: 20060828
  3. LOXAPAC [Concomitant]
  4. ARTANE [Concomitant]
  5. RIVOTRIL [Concomitant]
  6. THERALENE [Concomitant]
  7. LANTUS [Concomitant]
  8. RISPERDAL [Concomitant]

REACTIONS (7)
  - CONFUSIONAL STATE [None]
  - GAMMA-GLUTAMYLTRANSFERASE INCREASED [None]
  - HYPONATRAEMIA [None]
  - LUNG DISORDER [None]
  - PYREXIA [None]
  - SOMNOLENCE [None]
  - THROMBOCYTOPENIA [None]
